FAERS Safety Report 4595472-6 (Version None)
Quarter: 2005Q1

REPORT INFORMATION
  Report Type: 
  Country: None (occurrence: None)
  Receive Date: 20050302
  Receipt Date: 20041117
  Transmission Date: 20050727
  Serious: Yes (Hospitalization)
  Sender: FDA-Public Use
  Company Number: NL-JNJFOC-20040405460

PATIENT
  Age: 90 Year
  Sex: Female

DRUGS (5)
  1. REMICADE [Suspect]
     Indication: RHEUMATOID ARTHRITIS
     Route: 042
  2. SULFASALAZINE [Concomitant]
  3. CELEBREX [Concomitant]
     Indication: PAIN
  4. ACETAMINOPHEN [Concomitant]
     Indication: PAIN
  5. NEXIUM [Concomitant]

REACTIONS (1)
  - INTESTINAL ADENOCARCINOMA [None]
